FAERS Safety Report 6153189-0 (Version None)
Quarter: 2009Q2

REPORT INFORMATION
  Report Type: 
  Country: None (occurrence: None)
  Receive Date: 20090409
  Receipt Date: 20090401
  Transmission Date: 20091009
  Serious: Yes (Death, Other)
  Sender: FDA-Public Use
  Company Number: GXKR2009JP04158

PATIENT
  Age: 72 Year
  Sex: Male

DRUGS (3)
  1. CYCLOSPORINE [Suspect]
     Indication: RHEUMATOID ARTHRITIS
  2. CORTICOSTEROIDS (NO INGREDIENTS/SUBSTANCES) [Suspect]
     Indication: RHEUMATOID ARTHRITIS
     Dosage: 4 PULSE THERAPIES ; ORAL
  3. NSAID'S (NO INGREDIENTS/SUBSTANCES) [Concomitant]

REACTIONS (18)
  - BONE MARROW FAILURE [None]
  - COLLAPSE OF LUNG [None]
  - CYTOMEGALOVIRUS INFECTION [None]
  - EMPHYSEMA [None]
  - INTERSTITIAL LUNG DISEASE [None]
  - MYOCARDIAC ABSCESS [None]
  - PANCREATIC ABSCESS [None]
  - PLATELET COUNT DECREASED [None]
  - PLEURAL EFFUSION [None]
  - PNEUMONIA ASPIRATION [None]
  - PULMONARY CAVITATION [None]
  - PULMONARY FIBROSIS [None]
  - PULMONARY INFARCTION [None]
  - RED BLOOD CELL COUNT DECREASED [None]
  - RENAL ABSCESS [None]
  - RESPIRATORY FAILURE [None]
  - STAPHYLOCOCCAL BACTERAEMIA [None]
  - ZYGOMYCOSIS [None]
